FAERS Safety Report 5001723-6 (Version None)
Quarter: 2006Q2

REPORT INFORMATION
  Report Type: 
  Country: None (occurrence: None)
  Receive Date: 20060515
  Receipt Date: 20060503
  Transmission Date: 20061013
  Serious: Yes (Hospitalization, Other)
  Sender: FDA-Public Use
  Company Number: US-AMGEN-US178584

PATIENT
  Age: 45 Year
  Sex: Male

DRUGS (3)
  1. PROCRIT [Suspect]
     Indication: PRE-EXISTING DISEASE
     Dates: start: 20050101
  2. PEGASYS [Concomitant]
     Dates: start: 20050101
  3. RIBAVIRIN [Concomitant]
     Dates: start: 20050101

REACTIONS (2)
  - APLASIA PURE RED CELL [None]
  - CEREBROVASCULAR ACCIDENT [None]
